FAERS Safety Report 5816523-4 (Version None)
Quarter: 2008Q3

REPORT INFORMATION
  Report Type: 
  Country: None (occurrence: None)
  Receive Date: 20080721
  Receipt Date: 20080602
  Transmission Date: 20090109
  Serious: Yes (Other)
  Sender: FDA-Public Use
  Company Number: PL-BAXTER-2008BH003749

PATIENT
  Age: 61 Year
  Sex: Male
  Weight: 65 kg

DRUGS (3)
  1. DEXTRAN 40 10% IN DEXTROSE 5% [Suspect]
     Indication: PARENTERAL NUTRITION
     Route: 042
     Dates: start: 20080416, end: 20080416
  2. DEXTRAN 40 10% IN DEXTROSE 5% [Suspect]
     Indication: PRECEREBRAL ARTERY OCCLUSION
     Route: 042
     Dates: start: 20080416, end: 20080416
  3. DEXTRAN 40 10% IN DEXTROSE 5% [Suspect]
     Indication: CEREBROVASCULAR STENOSIS
     Route: 042
     Dates: start: 20080416, end: 20080416

REACTIONS (5)
  - ABDOMINAL PAIN [None]
  - ANXIETY [None]
  - BLOOD PRESSURE INCREASED [None]
  - ERYTHEMA [None]
  - HYPOAESTHESIA [None]
